FAERS Safety Report 18732084 (Version 2)
Quarter: 2021Q1

REPORT INFORMATION
  Report Type: Report from Study
  Country: US (occurrence: US)
  Receive Date: 20210112
  Receipt Date: 20210120
  Transmission Date: 20210419
  Serious: Yes (Other)
  Sender: FDA-Public Use
  Company Number: US-BAUSCH-BL-2021-000503

PATIENT
  Age: 81 Year
  Sex: Female
  Weight: 43.13 kg

DRUGS (4)
  1. CARVEDILOL. [Concomitant]
     Active Substance: CARVEDILOL
     Indication: PRODUCT USED FOR UNKNOWN INDICATION
     Route: 048
  2. DOXAZOSIN [Concomitant]
     Active Substance: DOXAZOSIN MESYLATE
     Indication: PRODUCT USED FOR UNKNOWN INDICATION
     Route: 048
  3. DEMSER [Suspect]
     Active Substance: METYROSINE
     Indication: PRODUCT USE IN UNAPPROVED INDICATION
     Route: 048
     Dates: start: 2020, end: 202010
  4. DEMSER [Suspect]
     Active Substance: METYROSINE
     Indication: PARAGANGLION NEOPLASM
     Route: 048
     Dates: start: 2019, end: 202003

REACTIONS (15)
  - Condition aggravated [Not Recovered/Not Resolved]
  - Hypoxia [Recovering/Resolving]
  - Palpitations [Recovering/Resolving]
  - Toxicity to various agents [Recovering/Resolving]
  - Fatigue [Recovering/Resolving]
  - Drug ineffective for unapproved indication [Unknown]
  - Asthenia [Recovering/Resolving]
  - Alopecia [Recovering/Resolving]
  - Weight decreased [Recovering/Resolving]
  - Cardiac failure congestive [Recovering/Resolving]
  - Dyspnoea [Recovering/Resolving]
  - Paraganglion neoplasm malignant [Not Recovered/Not Resolved]
  - Drug intolerance [Recovering/Resolving]
  - Product use in unapproved indication [Unknown]
  - Tachycardia [Recovering/Resolving]

NARRATIVE: CASE EVENT DATE: 2019
